FAERS Safety Report 9385670 (Version 1)
Quarter: 2013Q3

REPORT INFORMATION
  Report Type: Report from Study
  Country: ES (occurrence: ES)
  Receive Date: 20130705
  Receipt Date: 20130705
  Transmission Date: 20140515
  Serious: Yes (Other)
  Sender: FDA-Public Use
  Company Number: ES-GLAXOSMITHKLINE-B0905480A

PATIENT
  Age: 68 Year
  Sex: Male

DRUGS (9)
  1. VOTRIENT [Suspect]
     Indication: CLEAR CELL RENAL CELL CARCINOMA
     Dosage: 800MG PER DAY
     Route: 065
     Dates: start: 201301
  2. TORASEMIDE [Concomitant]
  3. OMEPRAZOL [Concomitant]
  4. ACETYL SALICYLIC ACID [Concomitant]
  5. CARDURAN [Concomitant]
  6. ACETYLCYSTEIN [Concomitant]
  7. SPIRIVA [Concomitant]
     Route: 055
  8. IVABRADINE [Concomitant]
  9. ATORVASTATIN [Concomitant]

REACTIONS (4)
  - Candida infection [Unknown]
  - Hypertension [Recovering/Resolving]
  - Rash [Unknown]
  - Toxicity to various agents [Unknown]
